FAERS Safety Report 10213082 (Version 3)
Quarter: 2014Q2

REPORT INFORMATION
  Report Type: Report from Study
  Country: PL (occurrence: PL)
  Receive Date: 20140603
  Receipt Date: 20140605
  Transmission Date: 20141212
  Serious: Yes (Disabling, Other)
  Sender: FDA-Public Use
  Company Number: PL-ROCHE-1408666

PATIENT
  Age: 72 Year
  Sex: Female
  Weight: 70 kg

DRUGS (5)
  1. RANIBIZUMAB [Suspect]
     Indication: AGE-RELATED MACULAR DEGENERATION
     Route: 050
     Dates: start: 20131206
  2. RANIBIZUMAB [Suspect]
     Dosage: LEFT EYE
     Route: 050
     Dates: start: 20140114
  3. RANIBIZUMAB [Suspect]
     Dosage: LEFT EYE
     Route: 050
     Dates: start: 20140214
  4. RANIBIZUMAB [Suspect]
     Route: 065
     Dates: start: 20140415
  5. RANIBIZUMAB [Suspect]
     Route: 050
     Dates: start: 20140516

REACTIONS (2)
  - Visual acuity reduced [Recovering/Resolving]
  - Age-related macular degeneration [Recovering/Resolving]
